FAERS Safety Report 11249544 (Version 1)
Quarter: 2015Q3

REPORT INFORMATION
  Report Type: Spontaneous
  Country: US (occurrence: US)
  Receive Date: 20150708
  Receipt Date: 20150708
  Transmission Date: 20151125
  Serious: Yes (Death, Other)
  Sender: FDA-Public Use
  Company Number: US-ELI_LILLY_AND_COMPANY-US201008002520

PATIENT
  Sex: Female

DRUGS (5)
  1. ALOXI [Concomitant]
     Active Substance: PALONOSETRON HYDROCHLORIDE
  2. VITAMIN B12 [Concomitant]
     Active Substance: CYANOCOBALAMIN
  3. LORAZEPAM. [Concomitant]
     Active Substance: LORAZEPAM
  4. DEXAMETHASONE. [Concomitant]
     Active Substance: DEXAMETHASONE
  5. ALIMTA [Suspect]
     Active Substance: PEMETREXED DISODIUM
     Indication: ADENOCARCINOMA
     Dosage: 1000 MG, UNK
     Route: 065
     Dates: start: 20100119, end: 20100316

REACTIONS (1)
  - Malignant neoplasm progression [Fatal]
